FAERS Safety Report 4737135-X (Version None)
Quarter: 2005Q3

REPORT INFORMATION
  Report Type: 
  Country: None (occurrence: None)
  Receive Date: 20050728
  Receipt Date: 20050525
  Transmission Date: 20060218
  Serious: No
  Sender: FDA-Public Use
  Company Number: 200515043US

PATIENT
  Age: 58 Year
  Sex: Female
  Weight: 50.9 kg

DRUGS (1)
  1. KETEK [Suspect]
     Dosage: 800 MG
     Dates: start: 20050524

REACTIONS (1)
  - NIGHTMARE [None]
